FAERS Safety Report 8693911 (Version 4)
Quarter: 2013Q2

REPORT INFORMATION
  Report Type: Spontaneous
  Country: US (occurrence: US)
  Receive Date: 20120731
  Receipt Date: 20130522
  Transmission Date: 20140414
  Serious: Yes (Other)
  Sender: FDA-Public Use
  Company Number: US-PFIZER INC-2012182098

PATIENT
  Age: 52 Year
  Sex: Female
  Weight: 68 kg

DRUGS (5)
  1. LYRICA [Suspect]
     Dosage: 75 MG, 2X/DAY
     Route: 048
     Dates: start: 201206
  2. LYRICA [Suspect]
     Dosage: 75 MG, 3X/DAY
     Route: 048
     Dates: start: 2012
  3. LYRICA [Suspect]
     Dosage: 150 MG, 2X/DAY
     Dates: start: 201207
  4. PROZAC [Concomitant]
     Indication: BLOOD PRESSURE ABNORMAL
     Dosage: 60 MG, 1X/DAY
  5. BUSPIRONE [Concomitant]
     Indication: ANXIETY
     Dosage: 15 MG, 3X/DAY

REACTIONS (2)
  - Weight increased [Unknown]
  - Drug ineffective [Unknown]
